FAERS Safety Report 13299638 (Version 1)
Quarter: 2017Q1

REPORT INFORMATION
  Report Type: Spontaneous
  Country: NO (occurrence: NO)
  Receive Date: 20170306
  Receipt Date: 20170306
  Transmission Date: 20170428
  Serious: Yes (Other)
  Sender: FDA-Public Use
  Company Number: NO-SHIRE-NO201703968

PATIENT
  Age: 15 Year
  Sex: Male

DRUGS (3)
  1. INTUNIV [Suspect]
     Active Substance: GUANFACINE HYDROCHLORIDE
     Indication: ATTENTION DEFICIT/HYPERACTIVITY DISORDER
     Dosage: 1 MG, 3X/DAY:TID
     Route: 048
     Dates: start: 201610, end: 201702
  2. RISPERIDON SANDOZ [Concomitant]
     Indication: MOOD SWINGS
     Dosage: 0.5 MG, 1X/DAY:QD
     Route: 048
  3. MELATONIN [Concomitant]
     Active Substance: MELATONIN
     Indication: SLEEP DISORDER
     Dosage: 3 MG, 1X/DAY:QD
     Route: 048

REACTIONS (2)
  - Erectile dysfunction [Unknown]
  - Inappropriate schedule of drug administration [Recovered/Resolved]

NARRATIVE: CASE EVENT DATE: 201610
